FAERS Safety Report 7428903-4 (Version None)
Quarter: 2011Q2

REPORT INFORMATION
  Report Type: 
  Country: None (occurrence: None)
  Receive Date: 20110421
  Receipt Date: 20110408
  Transmission Date: 20111010
  Serious: Yes (Hospitalization)
  Sender: FDA-Public Use
  Company Number: KR-JNJFOC-20110405311

PATIENT
  Sex: Female
  Weight: 59 kg

DRUGS (2)
  1. PROPRANOLOL [Concomitant]
     Indication: PRODUCT USED FOR UNKNOWN INDICATION
     Route: 048
  2. PLACEBO [Suspect]
     Indication: SCHIZOPHRENIA

REACTIONS (1)
  - PSYCHOTIC DISORDER [None]
